FAERS Safety Report 5728275-7 (Version None)
Quarter: 2008Q2

REPORT INFORMATION
  Report Type: 
  Country: None (occurrence: None)
  Receive Date: 20080502
  Receipt Date: 20080502
  Transmission Date: 20081010
  Serious: Yes (Other)
  Sender: FDA-Public Use
  Company Number: None

PATIENT
  Sex: Female
  Weight: 48.9885 kg

DRUGS (1)
  1. IBUPROFEN [Suspect]
     Indication: MIGRAINE
     Dosage: 1 PILL ONCE ONLY PO
     Route: 048
     Dates: start: 20080425, end: 20080425

REACTIONS (3)
  - FACE OEDEMA [None]
  - PRURITUS [None]
  - URTICARIA [None]
